FAERS Safety Report 11829909 (Version 1)
Quarter: 2015Q4

REPORT INFORMATION
  Report Type: Spontaneous
  Country: FR (occurrence: FR)
  Receive Date: 20151213
  Receipt Date: 20151213
  Transmission Date: 20160305
  Serious: Yes (Death, Hospitalization)
  Sender: FDA-Public Use
  Company Number: FR-ROXANE LABORATORIES, INC.-2015-RO-02068RO

PATIENT
  Age: 47 Year
  Sex: Male

DRUGS (16)
  1. PREDNISONE TABLETS USP, 5MG [Suspect]
     Active Substance: PREDNISONE
     Indication: MYCOSIS FUNGOIDES REFRACTORY
     Route: 065
  2. DOXORUBICIN [Suspect]
     Active Substance: DOXORUBICIN
     Indication: MYCOSIS FUNGOIDES REFRACTORY
     Route: 065
  3. METHOTREXATE [Suspect]
     Active Substance: METHOTREXATE
     Indication: MYCOSIS FUNGOIDES REFRACTORY
     Route: 061
  4. PEGFILGRASTIM [Suspect]
     Active Substance: PEGFILGRASTIM
     Indication: MYCOSIS FUNGOIDES REFRACTORY
     Route: 050
  5. ROMIDEPSIN [Suspect]
     Active Substance: ROMIDEPSIN
     Indication: MYCOSIS FUNGOIDES REFRACTORY
     Route: 065
  6. CYCLOPHOSPHAMIDE. [Suspect]
     Active Substance: CYCLOPHOSPHAMIDE
     Indication: MYCOSIS FUNGOIDES
  7. CYTARABINE. [Suspect]
     Active Substance: CYTARABINE
     Indication: MYCOSIS FUNGOIDES REFRACTORY
     Route: 065
  8. PREDNISONE TABLETS USP, 5MG [Suspect]
     Active Substance: PREDNISONE
     Indication: MYCOSIS FUNGOIDES
  9. VINCRISTINE [Suspect]
     Active Substance: VINCRISTINE
     Indication: MYCOSIS FUNGOIDES
  10. BEXAROTENE. [Suspect]
     Active Substance: BEXAROTENE
     Indication: MYCOSIS FUNGOIDES REFRACTORY
     Route: 061
  11. DEXAMETHASONE TABLETS USP, 1.5 MG [Suspect]
     Active Substance: DEXAMETHASONE
     Indication: MYCOSIS FUNGOIDES REFRACTORY
     Route: 065
  12. CARBOPLATIN. [Suspect]
     Active Substance: CARBOPLATIN
     Indication: MYCOSIS FUNGOIDES REFRACTORY
     Route: 065
  13. VINCRISTINE [Suspect]
     Active Substance: VINCRISTINE
     Indication: MYCOSIS FUNGOIDES REFRACTORY
     Route: 065
  14. CARMUSTINE [Suspect]
     Active Substance: CARMUSTINE
     Indication: MYCOSIS FUNGOIDES REFRACTORY
     Route: 061
  15. CYCLOPHOSPHAMIDE. [Suspect]
     Active Substance: CYCLOPHOSPHAMIDE
     Indication: MYCOSIS FUNGOIDES REFRACTORY
     Route: 065
  16. BENDAMUSTINE [Suspect]
     Active Substance: BENDAMUSTINE
     Indication: MYCOSIS FUNGOIDES REFRACTORY
     Route: 061

REACTIONS (5)
  - Neutrophilic dermatosis [Fatal]
  - Mycosis fungoides refractory [Not Recovered/Not Resolved]
  - General physical health deterioration [None]
  - Disease progression [None]
  - Febrile neutropenia [Unknown]
